FAERS Safety Report 15866269 (Version 1)
Quarter: 2019Q1

REPORT INFORMATION
  Report Type: Spontaneous
  Country: US (occurrence: US)
  Receive Date: 20190125
  Receipt Date: 20190125
  Transmission Date: 20190417
  Serious: No
  Sender: FDA-Public Use
  Company Number: US-PFIZER INC-2019032194

PATIENT
  Age: 58 Year
  Sex: Female
  Weight: 66 kg

DRUGS (1)
  1. IBRANCE [Suspect]
     Active Substance: PALBOCICLIB
     Indication: BREAST CANCER METASTATIC
     Dosage: 125 MG, CYCLIC (DAYS 1-21 Q28 DAYS)
     Route: 048
     Dates: start: 20190103

REACTIONS (5)
  - Pain of skin [Unknown]
  - Alopecia [Unknown]
  - Throat irritation [Unknown]
  - Oral mucosal blistering [Unknown]
  - Fatigue [Unknown]

NARRATIVE: CASE EVENT DATE: 201901
